FAERS Safety Report 17774296 (Version 1)
Quarter: 2020Q2

REPORT INFORMATION
  Report Type: Report from Study
  Country: US (occurrence: US)
  Receive Date: 20200513
  Receipt Date: 20200513
  Transmission Date: 20200714
  Serious: No
  Sender: FDA-Public Use
  Company Number: US-ROCHE-2596896

PATIENT
  Age: 58 Year
  Sex: Female
  Weight: 75.36 kg

DRUGS (1)
  1. OCREVUS [Suspect]
     Active Substance: OCRELIZUMAB
     Indication: RELAPSING MULTIPLE SCLEROSIS
     Route: 042
     Dates: start: 20190202

REACTIONS (8)
  - Skin atrophy [Unknown]
  - Aphonia [Unknown]
  - Fatigue [Unknown]
  - Herpes zoster [Unknown]
  - Hallucination [Unknown]
  - Mouth ulceration [Unknown]
  - Toothache [Unknown]
  - Trismus [Unknown]

NARRATIVE: CASE EVENT DATE: 2020
